FAERS Safety Report 6380958-4 (Version None)
Quarter: 2009Q3

REPORT INFORMATION
  Report Type: 
  Country: None (occurrence: None)
  Receive Date: 20090929
  Receipt Date: 20090921
  Transmission Date: 20100115
  Serious: Yes (Disabling)
  Sender: FDA-Public Use
  Company Number: GB-SANOFI-SYNTHELABO-A01200909861

PATIENT
  Age: 60 Year
  Sex: Female
  Weight: 83 kg

DRUGS (4)
  1. METHOTREXATE [Concomitant]
     Indication: ARTHRITIS
     Route: 048
  2. FOLIC ACID [Concomitant]
     Indication: ARTHRITIS
     Dosage: 5 MG
     Route: 048
  3. CANDESARTAN CILEXETIL [Concomitant]
     Indication: BLOOD PRESSURE INCREASED
     Route: 048
  4. PLAQUENIL [Suspect]
     Indication: ARTHRITIS
     Dosage: 200 MG
     Route: 048
     Dates: start: 20090604, end: 20090618

REACTIONS (1)
  - IRIS DISORDER [None]
